FAERS Safety Report 7473823-2 (Version None)
Quarter: 2011Q2

REPORT INFORMATION
  Report Type: 
  Country: None (occurrence: None)
  Receive Date: 20110511
  Receipt Date: 20110509
  Transmission Date: 20111010
  Serious: Yes (Death)
  Sender: FDA-Public Use
  Company Number: US-ABBOTT-11P-163-0724423-00

PATIENT
  Sex: Female

DRUGS (10)
  1. LORAZEPAM [Concomitant]
     Indication: ANXIETY
  2. ALBUTEROL INHALER [Concomitant]
     Indication: PULMONARY FIBROSIS
  3. COMPAZINE [Concomitant]
     Indication: NAUSEA
  4. PAXIL [Concomitant]
     Indication: PRODUCT USED FOR UNKNOWN INDICATION
  5. UNKNOWN COUGH MEDICINE WITH CODIENE [Concomitant]
     Indication: COUGH
  6. HUMIRA [Suspect]
     Indication: RHEUMATOID ARTHRITIS
     Dates: start: 20090101
  7. VICODIN [Concomitant]
     Indication: ARTHRALGIA
     Dates: start: 20070101
  8. MELPHALAN HYDROCHLORIDE [Concomitant]
     Indication: RHEUMATOID ARTHRITIS
  9. RISPERIDONE [Concomitant]
     Indication: DEPRESSION
  10. HYDROXYZINE [Concomitant]
     Indication: PRURITUS

REACTIONS (2)
  - SUDDEN DEATH [None]
  - MYOCARDIAL INFARCTION [None]
